FAERS Safety Report 9103896 (Version 2)
Quarter: 2013Q1

REPORT INFORMATION
  Report Type: Spontaneous
  Country: FR (occurrence: FR)
  Receive Date: 20130219
  Receipt Date: 20130325
  Transmission Date: 20140127
  Serious: Yes (Death, Hospitalization, Other)
  Sender: FDA-Public Use
  Company Number: FR-JNJFOC-20130208567

PATIENT
  Age: 73 Year
  Sex: Male

DRUGS (8)
  1. XARELTO [Suspect]
     Indication: PRODUCT USED FOR UNKNOWN INDICATION
     Route: 048
     Dates: start: 2012, end: 20130128
  2. KARDEGIC [Suspect]
     Indication: PRODUCT USED FOR UNKNOWN INDICATION
     Route: 065
     Dates: end: 20130128
  3. CORDARONE [Concomitant]
     Route: 065
     Dates: start: 201012
  4. PREVISCAN (FLUINDIONE) [Concomitant]
     Route: 065
  5. CARDENSIEL [Concomitant]
     Route: 065
  6. LASILIX [Concomitant]
     Route: 065
     Dates: start: 201012
  7. KALEORID [Concomitant]
     Route: 065
     Dates: start: 201012
  8. LEVOTHYROX [Concomitant]
     Route: 065

REACTIONS (4)
  - Cerebral haemorrhage [Fatal]
  - Tumour rupture [Fatal]
  - Coma [Fatal]
  - Brain stem haemorrhage [Fatal]
